FAERS Safety Report 4663126-3 (Version None)
Quarter: 2005Q2

REPORT INFORMATION
  Report Type: 
  Country: None (occurrence: None)
  Receive Date: 20050510
  Receipt Date: 20040802
  Transmission Date: 20051028
  Serious: Yes (Hospitalization, Other)
  Sender: FDA-Public Use
  Company Number: PHEH2004US05756

PATIENT
  Age: 35 Year
  Sex: Female
  Weight: 77.1 kg

DRUGS (2)
  1. TEGRETOL [Suspect]
     Indication: GRAND MAL CONVULSION
     Dosage: 600 MG, BID, ORAL
     Route: 048
     Dates: start: 19730101
  2. PHENYTOIN [Suspect]
     Indication: GRAND MAL CONVULSION
     Dosage: 300 MG, BID, ORAL
     Route: 048
     Dates: start: 20020101

REACTIONS (6)
  - ABNORMAL BEHAVIOUR [None]
  - CONVULSION [None]
  - DRUG LEVEL DECREASED [None]
  - DYSKINESIA [None]
  - SPEECH DISORDER [None]
  - TREMOR [None]
